FAERS Safety Report 5228922-2 (Version None)
Quarter: 2007Q1

REPORT INFORMATION
  Report Type: 
  Country: None (occurrence: None)
  Receive Date: 20070205
  Receipt Date: 20070125
  Transmission Date: 20070707
  Serious: Yes (Other)
  Sender: FDA-Public Use
  Company Number: US-SANOFI-SYNTHELABO-A03200700517

PATIENT
  Sex: Female

DRUGS (10)
  1. ELOXATIN [Suspect]
     Indication: COLON CANCER
     Route: 042
     Dates: start: 20070108, end: 20070108
  2. OXYCODONE HCL [Concomitant]
     Dosage: UNK
     Route: 048
  3. ATIVAN [Concomitant]
     Dosage: UNK
     Route: 065
  4. DECADRON [Concomitant]
     Dosage: TAKEN ON DAY #2 AND #3 OF CHEMOTHERAPY
     Route: 065
  5. COMPAZINE [Concomitant]
     Dosage: UNK
     Route: 065
  6. MULTI-VITAMIN [Concomitant]
     Dosage: UNK
     Route: 048
  7. COZAAR [Concomitant]
     Dosage: 50 MG-TWO TABLETS DAILY
     Route: 048
  8. TOPROL-XL [Concomitant]
     Route: 048
  9. CLONIDINE [Concomitant]
     Dosage: 0.2 MG, THREE TABLETS DAILY
     Route: 048
  10. VERAPAMIL [Concomitant]
     Route: 048

REACTIONS (1)
  - APLASTIC ANAEMIA [None]
